FAERS Safety Report 10227184 (Version 2)
Quarter: 2014Q2

REPORT INFORMATION
  Report Type: Other
  Country: US (occurrence: US)
  Receive Date: 20140610
  Receipt Date: 20140610
  Transmission Date: 20141212
  Serious: Yes (Hospitalization, Other)
  Sender: FDA-Public Use
  Company Number: US-GSKPPD-2014GSK000104

PATIENT
  Age: 68 Year
  Sex: Male

DRUGS (7)
  1. AVANDIA [Suspect]
     Indication: DIABETES MELLITUS
     Route: 048
     Dates: start: 20050620, end: 20070419
  2. LIPITOR [Concomitant]
  3. ZETIA [Concomitant]
  4. ATENOLOL [Concomitant]
  5. PLAVIX [Concomitant]
  6. DYAZIDE [Concomitant]
  7. ASPIRIN [Concomitant]

REACTIONS (2)
  - Cardiac failure congestive [None]
  - Coronary artery disease [Recovered/Resolved]
